FAERS Safety Report 25875297 (Version 1)
Quarter: 2025Q4

REPORT INFORMATION
  Report Type: Spontaneous
  Country: US (occurrence: US)
  Receive Date: 20251003
  Receipt Date: 20251003
  Transmission Date: 20260118
  Serious: No
  Sender: ROCHE
  Company Number: US-ROCHE-10000395677

PATIENT
  Sex: Female

DRUGS (1)
  1. OCREVUS ZUNOVO [Suspect]
     Active Substance: HYALURONIDASE-OCSQ\OCRELIZUMAB
     Indication: Product used for unknown indication
     Route: 050

REACTIONS (7)
  - Injection site pruritus [Unknown]
  - Fatigue [Unknown]
  - Infusion site pain [Unknown]
  - Pruritus [Unknown]
  - Swelling [Unknown]
  - Pain [Unknown]
  - Musculoskeletal chest pain [Unknown]
